FAERS Safety Report 5028536-3 (Version None)
Quarter: 2006Q2

REPORT INFORMATION
  Report Type: 
  Country: None (occurrence: None)
  Receive Date: 20060617
  Receipt Date: 20050705
  Transmission Date: 20061013
  Serious: Yes (Hospitalization)
  Sender: FDA-Public Use
  Company Number: JP-BOEHRINGER INGELHEIM PHARMACEUTICALS, INC.-2005-BP-11267NB

PATIENT
  Sex: Male

DRUGS (12)
  1. SPIRIVA [Suspect]
     Indication: EMPHYSEMA
     Route: 055
     Dates: start: 20050513, end: 20050524
  2. THEOLONG [Concomitant]
     Indication: EMPHYSEMA
     Route: 048
  3. SEREVENT [Concomitant]
     Indication: EMPHYSEMA
     Route: 055
  4. PULMICORT [Concomitant]
     Indication: EMPHYSEMA
     Route: 048
  5. MUCOSOLVAN [Concomitant]
     Indication: EMPHYSEMA
     Route: 048
  6. PARIET [Concomitant]
     Indication: PROPHYLAXIS AGAINST GASTROINTESTINAL ULCER
     Route: 048
  7. ASPIRIN [Concomitant]
     Indication: EMPHYSEMA
     Route: 048
  8. DIOVAN [Concomitant]
     Indication: HYPERTENSION
     Route: 048
  9. SAIBOKU-TO [Concomitant]
     Indication: EMPHYSEMA
     Route: 048
  10. CLARITHROMYCIN [Concomitant]
     Indication: EMPHYSEMA
     Route: 048
  11. SPELEAR [Concomitant]
     Indication: PROPHYLAXIS AGAINST GASTROINTESTINAL ULCER
     Route: 048
  12. LASIX [Concomitant]
     Indication: COR PULMONALE
     Route: 065

REACTIONS (1)
  - URINARY RETENTION [None]
